FAERS Safety Report 16469495 (Version 1)
Quarter: 2019Q2

REPORT INFORMATION
  Report Type: Spontaneous
  Country: US (occurrence: US)
  Receive Date: 20190624
  Receipt Date: 20190624
  Transmission Date: 20190711
  Serious: Yes (Hospitalization)
  Sender: FDA-Public Use
  Company Number: US-TEVA-2019-US-1064205

PATIENT
  Sex: Male

DRUGS (7)
  1. COMPOUNDED ORAL TRANSMUCOSAL FENTANYL PRODUCT [Concomitant]
  2. OXYCODONE ER [Concomitant]
     Active Substance: OXYCODONE
  3. ACTIQ [Suspect]
     Active Substance: FENTANYL CITRATE
     Indication: PRODUCT USED FOR UNKNOWN INDICATION
  4. OXYCODONE [Concomitant]
     Active Substance: OXYCODONE
  5. FENTANYL. [Concomitant]
     Active Substance: FENTANYL
  6. METHADONE [Concomitant]
     Active Substance: METHADONE HYDROCHLORIDE
  7. FENTANYL TRANSDERMAL SYSTEM [Concomitant]
     Active Substance: FENTANYL

REACTIONS (1)
  - Lung neoplasm malignant [Unknown]
